FAERS Safety Report 7009270-7 (Version None)
Quarter: 2010Q3

REPORT INFORMATION
  Report Type: 
  Country: None (occurrence: None)
  Receive Date: 20100923
  Receipt Date: 20100914
  Transmission Date: 20110219
  Serious: Yes (Hospitalization)
  Sender: FDA-Public Use
  Company Number: CN-BRISTOL-MYERS SQUIBB COMPANY-15295413

PATIENT
  Age: 57 Year
  Sex: Female
  Weight: 63 kg

DRUGS (1)
  1. CETUXIMAB [Suspect]
     Indication: HEAD AND NECK CANCER
     Dosage: STRENGTH:5MG/ML
     Route: 042
     Dates: start: 20100329, end: 20100517

REACTIONS (1)
  - LOCALISED OEDEMA [None]
